FAERS Safety Report 16343328 (Version 3)
Quarter: 2019Q2

REPORT INFORMATION
  Report Type: Spontaneous
  Country: JP (occurrence: JP)
  Receive Date: 20190522
  Receipt Date: 20190625
  Transmission Date: 20190711
  Serious: Yes (Other)
  Sender: FDA-Public Use
  Company Number: JP-ASTRAZENECA-2019SE74384

PATIENT
  Age: 846 Month
  Sex: Female
  Weight: 43 kg

DRUGS (2)
  1. FASLODEX [Suspect]
     Active Substance: FULVESTRANT
     Indication: BREAST CANCER FEMALE
     Route: 030
     Dates: start: 20190408
  2. RANMARK [Suspect]
     Active Substance: DENOSUMAB
     Indication: METASTASES TO BONE
     Route: 058
     Dates: start: 20180630

REACTIONS (3)
  - Administration site urticaria [Recovered/Resolved]
  - Hypoaesthesia [Recovered/Resolved]
  - Administration site necrosis [Not Recovered/Not Resolved]

NARRATIVE: CASE EVENT DATE: 201904
